FAERS Safety Report 5542391-4 (Version None)
Quarter: 2007Q4

REPORT INFORMATION
  Report Type: 
  Country: None (occurrence: None)
  Receive Date: 20071129
  Receipt Date: 20070618
  Transmission Date: 20080405
  Serious: Yes (Hospitalization)
  Sender: FDA-Public Use
  Company Number: US200704000289

PATIENT
  Age: 51 Year
  Sex: Male
  Weight: 121.1 kg

DRUGS (3)
  1. ZYPREXA [Suspect]
     Indication: BIPOLAR DISORDER
     Dosage: 20 MG
     Dates: start: 20020401, end: 20030301
  2. DEPAKOTE [Concomitant]
  3. LITHANE (LITHIUM CARBONATE) [Concomitant]

REACTIONS (3)
  - ANXIETY [None]
  - DEPRESSION [None]
  - TYPE 2 DIABETES MELLITUS [None]
